FAERS Safety Report 7763564-6 (Version None)
Quarter: 2011Q3

REPORT INFORMATION
  Report Type: 
  Country: None (occurrence: None)
  Receive Date: 20110920
  Receipt Date: 20110919
  Transmission Date: 20111222
  Serious: Yes (Hospitalization, Other)
  Sender: FDA-Public Use
  Company Number: DE-ABBOTT-11P-062-0734200-00

PATIENT
  Sex: Female
  Weight: 75 kg

DRUGS (3)
  1. HUMIRA [Suspect]
     Indication: RHEUMATOID ARTHRITIS
     Route: 058
     Dates: start: 20060101, end: 20080601
  2. HUMIRA [Suspect]
     Dates: start: 20110420
  3. HUMIRA [Suspect]
     Dates: start: 20101201, end: 20110401

REACTIONS (3)
  - POST LUMBAR PUNCTURE SYNDROME [None]
  - DEVICE DISLOCATION [None]
  - RESTLESS LEGS SYNDROME [None]
